FAERS Safety Report 4906933-1 (Version None)
Quarter: 2006Q1

REPORT INFORMATION
  Report Type: 
  Country: None (occurrence: None)
  Receive Date: 20060207
  Receipt Date: 20060106
  Transmission Date: 20060701
  Serious: Yes (Hospitalization)
  Sender: FDA-Public Use
  Company Number: 2005-136328-NL

PATIENT
  Age: 56 Year
  Sex: Male

DRUGS (8)
  1. VECURONIUM BROMIDE [Suspect]
     Indication: INTUBATION
     Dosage: 0.1 MG/KG ONCE//0.2 MG/KG ONCE INTRAVENOUS (NOS)
     Route: 042
  2. VECURONIUM BROMIDE [Suspect]
     Indication: MUSCLE RELAXANT THERAPY
     Dosage: 0.1 MG/KG ONCE//0.2 MG/KG ONCE INTRAVENOUS (NOS)
     Route: 042
  3. THIOPENTAL SODIUM [Concomitant]
  4. FENTANYL CITRATE [Concomitant]
  5. NITROUS OXIDE W/ OXYGEN [Concomitant]
  6. ENFLURANE [Concomitant]
  7. ATROPINE [Concomitant]
  8. NEOSTIGMINE [Concomitant]

REACTIONS (9)
  - DEPRESSED LEVEL OF CONSCIOUSNESS [None]
  - HEPATIC FUNCTION ABNORMAL [None]
  - HYPERGLYCAEMIA [None]
  - HYPERKALAEMIA [None]
  - METABOLIC ACIDOSIS [None]
  - NEUROMUSCULAR BLOCK PROLONGED [None]
  - OPERATIVE HAEMORRHAGE [None]
  - RENAL FAILURE [None]
  - SUTURE RELATED COMPLICATION [None]
